FAERS Safety Report 7757538-9 (Version None)
Quarter: 2011Q3

REPORT INFORMATION
  Report Type: 
  Country: None (occurrence: None)
  Receive Date: 20110916
  Receipt Date: 20110907
  Transmission Date: 20111222
  Serious: Yes (Other)
  Sender: FDA-Public Use
  Company Number: US-BAYER-200829294NA

PATIENT
  Sex: Male
  Weight: 87.528 kg

DRUGS (26)
  1. EPOGEN [Concomitant]
  2. PREDNISONE [Concomitant]
  3. IRON SULFATETHIAMIN COMPOUND TAB [Concomitant]
  4. OMNISCAN [Suspect]
     Indication: PRODUCT USED FOR UNKNOWN INDICATION
  5. GLIPIZIDE [Concomitant]
  6. SYNTHROID [Concomitant]
  7. PROTONIX [Concomitant]
  8. COLCHICINE [Concomitant]
  9. COZAAR [Concomitant]
  10. ROCALTROL [Concomitant]
  11. MAGNEVIST [Suspect]
     Indication: NUCLEAR MAGNETIC RESONANCE IMAGING
     Dosage: UNK UNK, ONCE
     Dates: start: 20020328, end: 20020328
  12. MULTIHANCE [Suspect]
     Indication: PRODUCT USED FOR UNKNOWN INDICATION
  13. LANTUS [Concomitant]
  14. FISH OIL [Concomitant]
  15. JANUVIA [Concomitant]
  16. PROHANCE [Suspect]
     Indication: PRODUCT USED FOR UNKNOWN INDICATION
  17. WARFARIN SODIUM [Concomitant]
  18. TOPROL-XL [Concomitant]
  19. ALLOPURINOL [Concomitant]
  20. LIPITOR [Concomitant]
  21. OPTIMARK [Suspect]
     Indication: PRODUCT USED FOR UNKNOWN INDICATION
  22. PROGRAF [Concomitant]
  23. MYCOPHENOLATE MOFETIL (CELLCEPT) [Concomitant]
  24. AMLODIPINE BESYLATE [Concomitant]
  25. FUROSEMIDE [Concomitant]
  26. NORVASC [Concomitant]

REACTIONS (18)
  - MUSCULAR WEAKNESS [None]
  - SKIN INDURATION [None]
  - SKIN ULCER [None]
  - PAIN [None]
  - FATIGUE [None]
  - ANXIETY [None]
  - GENERAL PHYSICAL HEALTH DETERIORATION [None]
  - NEPHROGENIC SYSTEMIC FIBROSIS [None]
  - ARTHRALGIA [None]
  - EMOTIONAL DISTRESS [None]
  - JOINT SWELLING [None]
  - MOBILITY DECREASED [None]
  - DISCOMFORT [None]
  - INJURY [None]
  - RASH [None]
  - BACK PAIN [None]
  - PRURITUS [None]
  - JOINT INSTABILITY [None]
